FAERS Safety Report 7971834-1 (Version None)
Quarter: 2011Q4

REPORT INFORMATION
  Report Type: 
  Country: None (occurrence: None)
  Receive Date: 20111212
  Receipt Date: 20111031
  Transmission Date: 20120403
  Serious: No
  Sender: FDA-Public Use
  Company Number: US-BAYER-2011-106690

PATIENT
  Age: 35 Year
  Sex: Female
  Weight: 74.83 kg

DRUGS (2)
  1. ALEVE (CAPLET) [Suspect]
     Indication: ANALGESIC THERAPY
     Dosage: 2 TABLETS USED ONLY ONE TIME
     Route: 048
     Dates: start: 20110601, end: 20110601
  2. MULTI-VITAMINS [Concomitant]
     Route: 048

REACTIONS (1)
  - DRUG INEFFECTIVE [None]
